FAERS Safety Report 4477327-0 (Version None)
Quarter: 2004Q4

REPORT INFORMATION
  Report Type: 
  Country: None (occurrence: None)
  Receive Date: 20041018
  Receipt Date: 20040922
  Transmission Date: 20050328
  Serious: Yes (Other)
  Sender: FDA-Public Use
  Company Number: DE-JNJFOC-20041000721

PATIENT
  Age: 82 Year
  Sex: Female

DRUGS (1)
  1. DURAGESIC [Suspect]
     Route: 062

REACTIONS (3)
  - APATHY [None]
  - CONDITION AGGRAVATED [None]
  - DEPRESSION [None]
